FAERS Safety Report 6331098-1 (Version None)
Quarter: 2009Q3

REPORT INFORMATION
  Report Type: 
  Country: None (occurrence: None)
  Receive Date: 20090827
  Receipt Date: 20090820
  Transmission Date: 20100115
  Serious: Yes (Life-Threatening, Hospitalization, Other)
  Sender: FDA-Public Use
  Company Number: RU-ROCHE-623217

PATIENT
  Age: 63 Year
  Sex: Female

DRUGS (4)
  1. XELODA [Suspect]
     Route: 065
     Dates: start: 20080101
  2. AVASTIN [Suspect]
     Route: 042
     Dates: start: 20090201
  3. MITOMICINA [Suspect]
     Route: 065
     Dates: start: 20081201
  4. IRINOTECAN HCL [Concomitant]
     Dates: start: 20080429

REACTIONS (6)
  - CIRCULATORY COLLAPSE [None]
  - COAGULATION TIME PROLONGED [None]
  - DIZZINESS [None]
  - EPISTAXIS [None]
  - GINGIVAL BLEEDING [None]
  - THROMBOCYTOPENIA [None]
